FAERS Safety Report 5324171-8 (Version None)
Quarter: 2007Q2

REPORT INFORMATION
  Report Type: 
  Country: None (occurrence: None)
  Receive Date: 20070514
  Receipt Date: 20070507
  Transmission Date: 20071010
  Serious: Yes (Hospitalization)
  Sender: FDA-Public Use
  Company Number: US-ELI_LILLY_AND_COMPANY-US200603003779

PATIENT
  Age: 61 Year
  Sex: Male
  Weight: 95.238 kg

DRUGS (1)
  1. ZYPREXA [Suspect]
     Indication: POST-TRAUMATIC STRESS DISORDER
     Dates: start: 20000101, end: 20010101

REACTIONS (2)
  - DIABETES MELLITUS NON-INSULIN-DEPENDENT [None]
  - STENT PLACEMENT [None]
